FAERS Safety Report 13118728 (Version 2)
Quarter: 2017Q1

REPORT INFORMATION
  Report Type: Spontaneous
  Country: US (occurrence: US)
  Receive Date: 20170116
  Receipt Date: 20170217
  Transmission Date: 20170428
  Serious: Yes (Other)
  Sender: FDA-Public Use
  Company Number: US-ASTRAZENECA-2017SE03979

PATIENT
  Age: 781 Month
  Sex: Female
  Weight: 53.5 kg

DRUGS (20)
  1. MONTELUKAST SODIUM. [Concomitant]
     Active Substance: MONTELUKAST SODIUM
  2. FLUCONAZOLE. [Concomitant]
     Active Substance: FLUCONAZOLE
     Dosage: 150.0MG UNKNOWN
  3. HYPOGLYCEMIC DRUGS [Concomitant]
     Active Substance: UNSPECIFIED INGREDIENT
     Route: 048
  4. TRAMADOL HCL [Concomitant]
     Active Substance: TRAMADOL HYDROCHLORIDE
     Dosage: 50 MG TABLET 1 TABLET AS NEEDED TID
  5. MULTIVITAMINS [Concomitant]
     Active Substance: VITAMINS
     Dosage: AS DIRECTED
  6. JANUMET [Concomitant]
     Active Substance: METFORMIN HYDROCHLORIDE\SITAGLIPTIN PHOSPHATE
     Dosage: 50-1000 MG TAKE ONE TABLET BY MOUTH TWICE A DAY WITH FOOD
  7. LISINOPRIL. [Concomitant]
     Active Substance: LISINOPRIL
  8. OMEPRAZOLE. [Concomitant]
     Active Substance: OMEPRAZOLE
     Dosage: 20 MG CAPSULE DELAYED RELEASE ONCE A DAY
  9. PROAIR HFA [Concomitant]
     Active Substance: ALBUTEROL SULFATE
     Dosage: 108 (90 BASE) MCG/ACT AEROSOL SOLUTION 2 PUFFS AS NEEDED EVERY 4 HRS
  10. MUCINEX [Concomitant]
     Active Substance: GUAIFENESIN
     Dosage: 600 MG TABLET EXTENDED RELEASE 12 HOUR 1 TABLET AS NEEDED EVERY 12 HRS
  11. TRULICITY [Concomitant]
     Active Substance: DULAGLUTIDE
     Dosage: 1.5 MG/O.SML, 0.5 ML EVERY WEEK, 4 WEEKS,
     Route: 058
  12. BYDUREON [Suspect]
     Active Substance: EXENATIDE
     Indication: TYPE 2 DIABETES MELLITUS
     Route: 058
     Dates: start: 201610
  13. BYDUREON [Suspect]
     Active Substance: EXENATIDE
     Indication: TYPE 2 DIABETES MELLITUS
     Route: 058
     Dates: start: 201612, end: 20170104
  14. CARAFATE [Concomitant]
     Active Substance: SUCRALFATE
     Dosage: 1 GM/10ML SUSPENSION 10 ML TWICE A DAY
  15. CALTRATE 600+D [Concomitant]
     Dosage: 600-400 MG-UNIT TABLET 1 TABLET WITH FOOD TWICE A DAY
  16. INVOKANA [Concomitant]
     Active Substance: CANAGLIFLOZIN
  17. MOMETASONE FUROATE. [Concomitant]
     Active Substance: MOMETASONE FUROATE
     Dosage: 50 MCG/ACT SUSPENSION 2 SPRAYS IN EACH NOSTRIL ONCE A DAY
  18. MECLIZINE HYDROCHLORIDE. [Concomitant]
     Active Substance: MECLIZINE HYDROCHLORIDE
     Dosage: 25 MG TABLET 1 TABLET AS NEEDED BID
  19. ZYRTEC [Concomitant]
     Active Substance: CETIRIZINE HYDROCHLORIDE
     Dosage: 10 MG TABLET 1 TABLET AS NEEDED ONCE A DAY
  20. CEPHALEXIN. [Concomitant]
     Active Substance: CEPHALEXIN
     Dosage: 500 MG CAPSULE 4 CAPS 1 HOUR BEFORE DENTAL PROCEDURE

REACTIONS (14)
  - Wheezing [Unknown]
  - Injection site haemorrhage [Unknown]
  - Diarrhoea [Recovered/Resolved]
  - Injection site pain [Unknown]
  - Drug hypersensitivity [Unknown]
  - Injection site pruritus [Unknown]
  - Vulvovaginal candidiasis [Unknown]
  - Change of bowel habit [Unknown]
  - Injection site nodule [Unknown]
  - Musculoskeletal pain [Unknown]
  - Skin lesion [Unknown]
  - Dysuria [Unknown]
  - Injection site erythema [Recovered/Resolved]
  - Nodule [Unknown]

NARRATIVE: CASE EVENT DATE: 201611
